FAERS Safety Report 9167072 (Version 1)
Quarter: 2013Q1

REPORT INFORMATION
  Report Type: Spontaneous
  Country: US (occurrence: None)
  Receive Date: 20130314
  Receipt Date: 20130314
  Transmission Date: 20140127
  Serious: Yes (Other)
  Sender: FDA-Public Use
  Company Number: None

PATIENT
  Age: 73 Year
  Sex: Female
  Weight: 68.2 kg

DRUGS (1)
  1. HYDROCODONE/APAP [Suspect]
     Indication: ARTHRALGIA
     Route: 048
     Dates: start: 20130212, end: 20130215

REACTIONS (4)
  - Gingival bleeding [None]
  - Pruritus [None]
  - Rash macular [None]
  - Product substitution issue [None]
